FAERS Safety Report 7281074-X (Version None)
Quarter: 2011Q1

REPORT INFORMATION
  Report Type: 
  Country: None (occurrence: None)
  Receive Date: 20110208
  Receipt Date: 20110128
  Transmission Date: 20110831
  Serious: Yes (Other)
  Sender: FDA-Public Use
  Company Number: US-MERCK-1101USA03602

PATIENT
  Age: 62 Year
  Sex: Female

DRUGS (2)
  1. VYTORIN [Suspect]
     Route: 048
     Dates: start: 20090801
  2. VYTORIN [Suspect]
     Route: 048
     Dates: start: 20091101, end: 20100601

REACTIONS (6)
  - RASH [None]
  - CONFUSIONAL STATE [None]
  - GALLBLADDER DISORDER [None]
  - CHOLELITHIASIS [None]
  - MEMORY IMPAIRMENT [None]
  - VEIN DISORDER [None]
